FAERS Safety Report 15398325 (Version 1)
Quarter: 2018Q3

REPORT INFORMATION
  Report Type: Spontaneous
  Country: AU (occurrence: AU)
  Receive Date: 20180918
  Receipt Date: 20180918
  Transmission Date: 20181010
  Serious: Yes (Other)
  Sender: FDA-Public Use
  Company Number: AU-BRISTOL-MYERS SQUIBB COMPANY-BMS-2018-083125

PATIENT
  Sex: Female

DRUGS (1)
  1. HYDREA [Suspect]
     Active Substance: HYDROXYUREA
     Indication: LEUKAEMIA
     Dosage: DAILY
     Route: 065

REACTIONS (4)
  - Lip and/or oral cavity cancer [Unknown]
  - Lymphoma [Unknown]
  - Inappropriate schedule of drug administration [Unknown]
  - Incorrect route of drug administration [Unknown]
